FAERS Safety Report 8056053 (Version 4)
Quarter: 2013Q3

REPORT INFORMATION
  Report Type: Spontaneous
  Country: US (occurrence: US)
  Receive Date: 20110727
  Receipt Date: 20130712
  Transmission Date: 20140515
  Serious: Yes (Death)
  Sender: FDA-Public Use
  Company Number: US-JNJFOC-20110709411

PATIENT
  Age: 63 Year
  Sex: Male
  Weight: 113.85 kg

DRUGS (40)
  1. STELARA [Suspect]
     Indication: PSORIASIS
     Route: 058
     Dates: start: 20110621, end: 20110621
  2. FLOMAX [Concomitant]
     Indication: PROSTATIC DISORDER
     Route: 048
     Dates: start: 20101116, end: 20110712
  3. DICLOFENAC [Concomitant]
     Indication: INFLAMMATION
     Route: 048
     Dates: start: 20110514, end: 20110712
  4. DETROL LA [Concomitant]
     Indication: URINARY RETENTION
     Route: 048
     Dates: end: 20110712
  5. ENALAPRIL [Concomitant]
     Indication: HYPERTENSION
     Route: 048
     Dates: start: 20110527, end: 20110712
  6. GLIPIZIDE XL [Concomitant]
     Indication: DIABETES MELLITUS
     Route: 048
     Dates: start: 20090929, end: 20110712
  7. LASIX [Concomitant]
     Indication: DIURETIC THERAPY
     Route: 048
     Dates: end: 20110712
  8. METFORMIN [Concomitant]
     Indication: DIABETES MELLITUS
     Route: 048
     Dates: start: 20100419, end: 20110712
  9. KCL [Concomitant]
     Indication: ELECTROLYTE SUBSTITUTION THERAPY
     Route: 048
     Dates: start: 20100208, end: 20110712
  10. SORIATANE [Concomitant]
     Indication: PSORIASIS
     Dosage: EVERY OTHER WEEK
     Route: 048
     Dates: start: 20081021, end: 20090519
  11. SORIATANE [Concomitant]
     Indication: PSORIASIS
     Dosage: MONDAY AND FRIDAY
     Route: 048
     Dates: start: 20090519, end: 20091229
  12. SORIATANE [Concomitant]
     Indication: PSORIASIS
     Dosage: MONDAY, WEDNESDAY, FRIDAY
     Route: 048
     Dates: start: 20091229, end: 20100409
  13. SORIATANE [Concomitant]
     Indication: PSORIASIS
     Route: 048
     Dates: start: 20080403, end: 20080415
  14. SORIATANE [Concomitant]
     Indication: PSORIASIS
     Dosage: EVEY OTHER DAY
     Route: 048
     Dates: start: 20081013, end: 20081021
  15. SORIATANE [Concomitant]
     Indication: PSORIASIS
     Route: 048
     Dates: start: 20100409, end: 20110712
  16. TRAZODONE [Concomitant]
     Indication: SLEEP DISORDER
     Dosage: BED TIME
     Route: 048
     Dates: start: 20090707, end: 20110712
  17. TRAMADOL [Concomitant]
     Indication: PAIN
     Route: 048
     Dates: start: 20070427, end: 20080827
  18. TRAMADOL [Concomitant]
     Indication: PAIN
     Route: 048
     Dates: start: 20080827, end: 20110712
  19. VITAMIN D [Concomitant]
     Indication: MEDICAL DIET
     Route: 048
     Dates: end: 20110712
  20. ZAROXOLYN [Concomitant]
     Indication: HYPERTENSION
     Route: 048
     Dates: end: 20110712
  21. SIMVASTATIN [Concomitant]
     Indication: HYPERLIPIDAEMIA
     Route: 048
     Dates: end: 20110712
  22. ACITRETIN [Concomitant]
  23. METOLAZONE [Concomitant]
  24. ZOCOR [Concomitant]
     Indication: BLOOD CHOLESTEROL INCREASED
     Route: 048
     Dates: start: 20070430, end: 20110712
  25. ALL OTHER THERAPEUTIC PRODUCTS [Concomitant]
  26. ULTRAM [Concomitant]
     Indication: PAIN
  27. FLUTICASONE [Concomitant]
     Indication: RHINITIS
     Route: 065
     Dates: start: 20090929, end: 20110712
  28. ACETAMINOPHEN [Concomitant]
     Indication: PAIN
  29. TRIAMCINOLONE ACETONIDE [Concomitant]
     Indication: PSORIASIS
  30. OPTIVAR [Concomitant]
  31. ERYTHROMYCIN [Concomitant]
     Dosage: APPLY TO EYELIDS AT BED TIME
     Route: 065
     Dates: start: 20110603, end: 20110712
  32. OXYGEN [Concomitant]
  33. ACTONEL [Concomitant]
     Indication: PRODUCT USED FOR UNKNOWN INDICATION
     Route: 065
     Dates: start: 20110309, end: 20110712
  34. FUROSEMIDE [Concomitant]
     Route: 048
     Dates: start: 20091222, end: 20110712
  35. HUMIRA [Concomitant]
     Route: 058
     Dates: start: 20091006
  36. HUMIRA [Concomitant]
     Route: 058
     Dates: start: 20090915
  37. HUMIRA [Concomitant]
     Route: 058
     Dates: start: 20110609, end: 20110610
  38. HUMIRA [Concomitant]
     Route: 058
     Dates: start: 20091020, end: 20110609
  39. HUMIRA [Concomitant]
     Route: 058
     Dates: start: 20090922
  40. ASPIRIN [Concomitant]
     Indication: CARDIAC DISORDER
     Route: 048
     Dates: start: 20070424, end: 20110612

REACTIONS (1)
  - Acute myocardial infarction [Fatal]
